FAERS Safety Report 9110337 (Version 4)
Quarter: 2013Q2

REPORT INFORMATION
  Report Type: Spontaneous
  Country: US (occurrence: US)
  Receive Date: 20130222
  Receipt Date: 20130510
  Transmission Date: 20140414
  Serious: No
  Sender: FDA-Public Use
  Company Number: US-009507513-1302USA010100

PATIENT
  Sex: Female

DRUGS (2)
  1. FOLLISTIM AQ CARTRIDGE [Suspect]
     Indication: ASSISTED FERTILISATION
     Dosage: 200-450 IU, UNK
     Route: 058
     Dates: start: 20130207, end: 20130216
  2. FOLLISTIM AQ CARTRIDGE [Suspect]
     Indication: OOCYTE DONOR

REACTIONS (2)
  - Oestradiol decreased [Unknown]
  - Ovarian disorder [Unknown]
